FAERS Safety Report 9236295 (Version 2)
Quarter: 2013Q2

REPORT INFORMATION
  Report Type: Report from Study
  Country: DE (occurrence: DE)
  Receive Date: 20130417
  Receipt Date: 20130506
  Transmission Date: 20140414
  Serious: Yes (Hospitalization)
  Sender: FDA-Public Use
  Company Number: DE-PFIZER INC-2013110865

PATIENT
  Age: 77 Year
  Sex: 0

DRUGS (8)
  1. SUTENT [Suspect]
     Indication: RENAL CELL CARCINOMA
     Dosage: UNK
     Dates: start: 20091130, end: 20130325
  2. SUTENT [Suspect]
     Dosage: 25 MG, DAILY
     Dates: start: 20130410
  3. HYDROCHLOROTHIAZIDE/METOPROLOL SUCCINATE [Concomitant]
     Dosage: 95 MG, UNK
  4. AMLODIPINE BESILATE [Concomitant]
     Dosage: 5 MG, UNK
  5. L-THYROXIN [Concomitant]
     Dosage: 75 MG, UNK
  6. TAMSULOSIN HYDROCHLORIDE [Concomitant]
     Dosage: UNK
  7. KALINOR-BRAUSETABLETTEN [Concomitant]
     Dosage: UNK
  8. PANTOZOL [Concomitant]
     Dosage: 20 MG, UNK

REACTIONS (1)
  - Gastroenteritis [Recovered/Resolved]
